FAERS Safety Report 6738577-3 (Version None)
Quarter: 2010Q2

REPORT INFORMATION
  Report Type: 
  Country: None (occurrence: None)
  Receive Date: 20100524
  Receipt Date: 20100513
  Transmission Date: 20101027
  Serious: Yes (Other)
  Sender: FDA-Public Use
  Company Number: CZ-PFIZER INC-2010060790

PATIENT
  Age: 24 Year
  Sex: Female

DRUGS (1)
  1. DOSTINEX [Suspect]
     Dosage: UNK

REACTIONS (3)
  - HEADACHE [None]
  - LACRIMATION INCREASED [None]
  - VISION BLURRED [None]
